FAERS Safety Report 5953705-5 (Version None)
Quarter: 2008Q4

REPORT INFORMATION
  Report Type: 
  Country: None (occurrence: None)
  Receive Date: 20081030
  Receipt Date: 20080616
  Transmission Date: 20090506
  Serious: No
  Sender: FDA-Public Use
  Company Number: 2008PV035778

PATIENT
  Age: 49 Year
  Sex: Female

DRUGS (3)
  1. SYMLIN [Suspect]
     Indication: TYPE 1 DIABETES MELLITUS
     Dosage: 12 MCG; QAM; SC
     Route: 058
     Dates: start: 20080615
  2. HUMALOG [Concomitant]
  3. LANTUS [Concomitant]

REACTIONS (2)
  - ASTHENIA [None]
  - FATIGUE [None]
